FAERS Safety Report 5239492-7 (Version None)
Quarter: 2007Q1

REPORT INFORMATION
  Report Type: 
  Country: None (occurrence: None)
  Receive Date: 20070214
  Receipt Date: 20070214
  Transmission Date: 20070707
  Serious: Yes (Other)
  Sender: FDA-Public Use
  Company Number: None

PATIENT
  Age: 16 Month
  Sex: Female
  Weight: 10.4327 kg

DRUGS (1)
  1. POLYVITAMIN DROPS WITH FLUORIDE 0.25 MG HI-TECH PHARACAL [Suspect]
     Indication: VITAMIN SUPPLEMENTATION
     Dosage: 1 ML DAY BUCCAL
     Route: 002

REACTIONS (5)
  - BIPOLAR I DISORDER [None]
  - CONDITION AGGRAVATED [None]
  - CYANOSIS [None]
  - GASTROOESOPHAGEAL REFLUX DISEASE [None]
  - NONSPECIFIC REACTION [None]
